FAERS Safety Report 9513054 (Version 3)
Quarter: 2013Q4

REPORT INFORMATION
  Report Type: Spontaneous
  Country: US (occurrence: US)
  Receive Date: 20130910
  Receipt Date: 20131202
  Transmission Date: 20140711
  Serious: Yes (Death, Other)
  Sender: FDA-Public Use
  Company Number: US-PFIZER INC-2013255543

PATIENT
  Age: 60 Year
  Sex: Female

DRUGS (2)
  1. REVATIO [Suspect]
     Indication: PULMONARY HYPERTENSION
     Dosage: 20 MG, 1X/DAY
     Route: 048
     Dates: start: 20120124
  2. REVATIO [Suspect]
     Indication: SYSTEMIC SCLEROSIS
     Dosage: 20 MG, 3X/DAY
     Dates: start: 20120410

REACTIONS (4)
  - Pulmonary hypertension [Fatal]
  - Scleroderma [Fatal]
  - Right ventricular failure [Unknown]
  - Feeling abnormal [Unknown]
